FAERS Safety Report 7382130-8 (Version None)
Quarter: 2011Q1

REPORT INFORMATION
  Report Type: 
  Country: None (occurrence: None)
  Receive Date: 20110329
  Receipt Date: 20101209
  Transmission Date: 20110831
  Serious: Yes (Other)
  Sender: FDA-Public Use
  Company Number: US-BAYER-201038775NA

PATIENT
  Sex: Female

DRUGS (4)
  1. ULTRAVIST 150 [Suspect]
     Indication: COMPUTERISED TOMOGRAM ABDOMEN
     Dosage: USING POWER INJECTOR @ A RATE OF 2 CC/ SECOND
     Route: 042
     Dates: start: 20101015, end: 20101015
  2. CONTRAST MEDIA [Concomitant]
     Indication: COMPUTERISED TOMOGRAM ABDOMEN
     Route: 048
     Dates: start: 20101015, end: 20101015
  3. BENADRYL [Concomitant]
     Indication: PREMEDICATION
  4. PREDNISONE [Concomitant]
     Indication: COMPUTERISED TOMOGRAM ABDOMEN

REACTIONS (3)
  - ERYTHEMA [None]
  - URTICARIA [None]
  - FLUSHING [None]
